FAERS Safety Report 6793461-4 (Version None)
Quarter: 2010Q2

REPORT INFORMATION
  Report Type: 
  Country: None (occurrence: None)
  Receive Date: 20100624
  Receipt Date: 20100514
  Transmission Date: 20101027
  Serious: Yes (Other)
  Sender: FDA-Public Use
  Company Number: US-MYLANLABS-2010S1004969

PATIENT
  Age: 58 Year
  Sex: Male

DRUGS (18)
  1. CLOZAPINE [Suspect]
     Indication: SCHIZOPHRENIA
     Route: 048
     Dates: end: 20100318
  2. ASPIRIN [Concomitant]
     Indication: CEREBROVASCULAR ACCIDENT
     Route: 048
  3. AVANDIA [Concomitant]
     Indication: DIABETES MELLITUS
     Route: 048
  4. BENZTROPINE MESYLATE [Concomitant]
     Indication: EXTRAPYRAMIDAL DISORDER
     Route: 048
  5. DIVALPROEX SODIUM EXTENDED RELEASE [Concomitant]
     Indication: MOOD SWINGS
     Route: 048
  6. DOCUSATE [Concomitant]
     Indication: CONSTIPATION
     Route: 048
  7. MAGNESIUM OXIDE [Concomitant]
     Indication: HYPOMAGNESAEMIA
     Route: 048
  8. MELOXICAM [Concomitant]
     Indication: PAIN
     Route: 048
  9. METAMUCIL-2 [Concomitant]
     Indication: CONSTIPATION
     Route: 048
  10. PALIPERIDONE [Concomitant]
     Indication: PSYCHOTIC DISORDER
     Route: 048
  11. POLYETHYLENE GLYCOL [Concomitant]
     Indication: CONSTIPATION
     Route: 048
  12. SENNA [Concomitant]
     Indication: CONSTIPATION
     Route: 048
  13. SERTRALINE HCL [Concomitant]
     Indication: DEPRESSION
     Route: 048
  14. SIMVASTATIN [Concomitant]
     Indication: HYPERLIPIDAEMIA
     Route: 048
  15. TRAZODONE HYDROCHLORIDE [Concomitant]
     Indication: INSOMNIA
     Route: 048
  16. LANTUS [Concomitant]
     Indication: DIABETES MELLITUS
     Route: 058
  17. NOVOLOG [Concomitant]
     Indication: DIABETES MELLITUS
     Dosage: PER SLIDING SCALE
     Route: 058
  18. COMBIVENT [Concomitant]
     Indication: ASTHMA
     Dosage: Q 6 HOURS PRN
     Route: 055

REACTIONS (2)
  - GRANULOCYTOPENIA [None]
  - LEUKOPENIA [None]
